FAERS Safety Report 6371141-7 (Version None)
Quarter: 2009Q3

REPORT INFORMATION
  Report Type: 
  Country: None (occurrence: None)
  Receive Date: 20090923
  Receipt Date: 20090916
  Transmission Date: 20100115
  Serious: Yes (Death)
  Sender: FDA-Public Use
  Company Number: JP-MERCK-0909USA02336

PATIENT
  Age: 76 Year
  Sex: Male

DRUGS (6)
  1. HYZAAR [Suspect]
     Indication: HYPERTENSION
     Route: 048
     Dates: start: 20081023
  2. GLIMICRON [Concomitant]
     Indication: DIABETES MELLITUS
     Route: 048
     Dates: start: 20080517
  3. GASTER [Concomitant]
     Indication: HYPERCHLORHYDRIA
     Route: 048
     Dates: start: 20080517
  4. HALCION [Concomitant]
     Indication: INSOMNIA
     Route: 048
     Dates: start: 20081216
  5. MELOXICAM [Concomitant]
     Indication: ANALGESIA
     Route: 048
     Dates: start: 20090414, end: 20090824
  6. AMLODIPINE BESYLATE [Concomitant]
     Indication: HYPERTENSION
     Route: 048
     Dates: start: 20090101

REACTIONS (1)
  - SUDDEN DEATH [None]
